FAERS Safety Report 5285257-X (Version None)
Quarter: 2007Q1

REPORT INFORMATION
  Report Type: 
  Country: None (occurrence: None)
  Receive Date: 20061229
  Receipt Date: 20060828
  Transmission Date: 20070707
  Serious: Yes (Other)
  Sender: FDA-Public Use
  Company Number: 2006UW17021

PATIENT
  Age: 63 Year
  Sex: Female
  Weight: 79.378 kg

DRUGS (2)
  1. CRESTOR [Suspect]
     Dosage: 5 MG QD PO
     Route: 048
     Dates: start: 20060807
  2. ATENOLOL [Concomitant]

REACTIONS (2)
  - ABDOMINAL DISTENSION [None]
  - FLATULENCE [None]
